FAERS Safety Report 15203872 (Version 2)
Quarter: 2018Q3

REPORT INFORMATION
  Report Type: Spontaneous
  Country: GR (occurrence: GR)
  Receive Date: 20180726
  Receipt Date: 20180917
  Transmission Date: 20181010
  Serious: Yes (Hospitalization, Other)
  Sender: FDA-Public Use
  Company Number: GR-SA-2018SA165070

PATIENT
  Age: 62 Year
  Sex: Female

DRUGS (7)
  1. SPIRONOLACTONE. [Suspect]
     Active Substance: SPIRONOLACTONE
  2. ACENOCOUMAROL [Suspect]
     Active Substance: ACENOCOUMAROL
  3. CARVEDILOL. [Suspect]
     Active Substance: CARVEDILOL
  4. ALLOPURINOL. [Suspect]
     Active Substance: ALLOPURINOL
  5. FUROSEMIDE. [Suspect]
     Active Substance: FUROSEMIDE
  6. INDAPAMIDE. [Suspect]
     Active Substance: INDAPAMIDE
  7. LEVOTHYROXINE SODIUM. [Suspect]
     Active Substance: LEVOTHYROXINE SODIUM

REACTIONS (13)
  - Ecchymosis [Recovered/Resolved]
  - Mucocutaneous haemorrhage [Recovered/Resolved]
  - Gastritis erosive [Unknown]
  - Haematemesis [Recovered/Resolved]
  - Contusion [Unknown]
  - Vessel puncture site haemorrhage [Recovered/Resolved]
  - Platelet dysfunction [Recovered/Resolved]
  - Acute kidney injury [Recovered/Resolved]
  - Gingival bleeding [Recovered/Resolved]
  - Gastric disorder [Unknown]
  - Haematuria [Recovered/Resolved]
  - Azotaemia [Recovering/Resolving]
  - Blood creatinine increased [Recovering/Resolving]
